FAERS Safety Report 7011762-1 (Version None)
Quarter: 2010Q3

REPORT INFORMATION
  Report Type: 
  Country: None (occurrence: None)
  Receive Date: 20100923
  Receipt Date: 20090716
  Transmission Date: 20110219
  Serious: No
  Sender: FDA-Public Use
  Company Number: US-WYE-H10200909

PATIENT
  Sex: Female

DRUGS (1)
  1. PREMARIN [Suspect]
     Indication: HORMONE REPLACEMENT THERAPY
     Dosage: 1.25 MG QD THEN STOPPED ON UNKNOWN DATE; STARTED 0.3 MG ON UNKNOWN DATE AND CONTINUED
     Route: 048

REACTIONS (2)
  - HAIR COLOUR CHANGES [None]
  - OCULAR ICTERUS [None]
